FAERS Safety Report 4844915-9 (Version None)
Quarter: 2005Q4

REPORT INFORMATION
  Report Type: 
  Country: None (occurrence: None)
  Receive Date: 20051128
  Receipt Date: 20051111
  Transmission Date: 20060501
  Serious: Yes (Hospitalization)
  Sender: FDA-Public Use
  Company Number: CLOF-10137

PATIENT
  Age: 78 Year
  Sex: Male

DRUGS (28)
  1. CLOFARABINE [Suspect]
     Indication: ACUTE MYELOID LEUKAEMIA
     Dosage: 67.8 MG QD X 5 IV
     Route: 042
     Dates: start: 20050513, end: 20050517
  2. HYDROCORTISONE [Concomitant]
  3. LEVO-ALBUTEROL [Concomitant]
  4. MEROPENEM [Concomitant]
  5. AMPHOTERICIN B [Concomitant]
  6. BENADRYL [Concomitant]
  7. PANTOPRAZOLE [Concomitant]
  8. FUROSEMIDE [Concomitant]
  9. DIGOXIN [Concomitant]
  10. AMIODARONE [Concomitant]
  11. AMOXICILLIN [Concomitant]
  12. CLARITHROMYCIN [Concomitant]
  13. PROMETHAZINE [Concomitant]
  14. POTASSIUM CHLORIDE [Concomitant]
  15. MAGNESIUM SULFATE [Concomitant]
  16. MEPERIDINE [Concomitant]
  17. LISINOPRIL [Concomitant]
  18. DILTIAZEM HCL [Concomitant]
  19. SIMETHICONE [Concomitant]
  20. TAMSULOSIN [Concomitant]
  21. SENNA [Concomitant]
  22. MAGNESIUM HYDROXIDE TAB [Concomitant]
  23. ALPRAZOLAM [Concomitant]
  24. TEMAZEPAM [Concomitant]
  25. TYLENOL [Concomitant]
  26. DARVON [Concomitant]
  27. IPRATROPIUM BROMIDE [Concomitant]
  28. VALACYCLOVIR HCL [Concomitant]

REACTIONS (1)
  - ATRIAL FIBRILLATION [None]
